FAERS Safety Report 6882310-1 (Version None)
Quarter: 2010Q3

REPORT INFORMATION
  Report Type: 
  Country: None (occurrence: None)
  Receive Date: 20100729
  Receipt Date: 20090814
  Transmission Date: 20110219
  Serious: No
  Sender: FDA-Public Use
  Company Number: US-MYLANLABS-2009S1014558

PATIENT
  Age: 52 Year
  Sex: Male

DRUGS (5)
  1. LEVOTHYROXINE SODIUM [Suspect]
     Indication: HYPOTHYROIDISM
     Route: 048
     Dates: start: 20090718, end: 20090725
  2. LEVOTHYROXINE SODIUM [Suspect]
     Route: 048
     Dates: start: 20090808, end: 20090812
  3. LEVOTHYROXINE SODIUM [Suspect]
     Route: 048
     Dates: start: 20090801, end: 20090801
  4. LORAZEPAM [Concomitant]
  5. MIRALAX [Concomitant]

REACTIONS (5)
  - ANXIETY [None]
  - DEPRESSED MOOD [None]
  - DYSPEPSIA [None]
  - MOROSE [None]
  - PALPITATIONS [None]
